FAERS Safety Report 23193830 (Version 1)
Quarter: 2023Q4

REPORT INFORMATION
  Report Type: Spontaneous
  Country: CN (occurrence: CN)
  Receive Date: 20231116
  Receipt Date: 20231116
  Transmission Date: 20240110
  Serious: Yes (Life-Threatening, Other)
  Sender: FDA-Public Use
  Company Number: CN-MLMSERVICE-20231106-4642961-1

PATIENT
  Age: 54 Year
  Sex: Female

DRUGS (2)
  1. GEMCITABINE HYDROCHLORIDE [Suspect]
     Active Substance: GEMCITABINE HYDROCHLORIDE
     Indication: Urethral cancer
     Dosage: 2000 MG/M2, DAY1,8 Q3, CYCLICAL
     Route: 065
     Dates: start: 201908
  2. CISPLATIN [Suspect]
     Active Substance: CISPLATIN
     Indication: Urethral cancer
     Dosage: 75 MG/M2, DAY1 Q3W, CYCLICAL
     Route: 065
     Dates: start: 201908

REACTIONS (1)
  - Myelosuppression [Unknown]
